FAERS Safety Report 4489482-7 (Version None)
Quarter: 2004Q4

REPORT INFORMATION
  Report Type: 
  Country: None (occurrence: None)
  Receive Date: 20041101
  Receipt Date: 20041025
  Transmission Date: 20050328
  Serious: Yes (Hospitalization)
  Sender: FDA-Public Use
  Company Number: PHNU2004DE03630

PATIENT
  Age: 21 Year
  Sex: Female

DRUGS (4)
  1. CLOZARIL [Suspect]
     Indication: SCHIZOPHRENIA
     Dosage: UP TO 125 MG/DAY
     Route: 048
     Dates: start: 20021127, end: 20021211
  2. HALDOL [Concomitant]
     Dosage: 10 MG/DAY
     Route: 048
     Dates: start: 20021025, end: 20021122
  3. HALDOL [Concomitant]
     Dosage: 3 MG/DAY
     Route: 048
     Dates: start: 20021123, end: 20021230
  4. AKINETON                                /AUS/ [Concomitant]
     Dosage: 2 MG/DAY
     Route: 048
     Dates: start: 20021008, end: 20021230

REACTIONS (5)
  - ARTHRALGIA [None]
  - BODY TEMPERATURE INCREASED [None]
  - C-REACTIVE PROTEIN INCREASED [None]
  - FATIGUE [None]
  - WHITE BLOOD CELL COUNT INCREASED [None]
